FAERS Safety Report 10094912 (Version 1)
Quarter: 2014Q2

REPORT INFORMATION
  Report Type: Spontaneous
  Country: US (occurrence: US)
  Receive Date: 20140422
  Receipt Date: 20140422
  Transmission Date: 20141212
  Serious: No
  Sender: FDA-Public Use
  Company Number: US-BAUSCH-BL-2014-000692

PATIENT
  Age: 69 Year
  Sex: Female
  Weight: 53.12 kg

DRUGS (1)
  1. PROLENSA (BROMFENAC OPHTHALMIC SOLUTION) 0.07% [Suspect]
     Indication: PROCEDURAL PAIN
     Dosage: ONE DROP IN THE MORNING INTO THE RIGHT EYE
     Route: 047
     Dates: start: 20140123

REACTIONS (2)
  - Arthralgia [Not Recovered/Not Resolved]
  - Toothache [Not Recovered/Not Resolved]
